FAERS Safety Report 8287062-9 (Version None)
Quarter: 2012Q2

REPORT INFORMATION
  Report Type: 
  Country: None (occurrence: None)
  Receive Date: 20120416
  Receipt Date: 20120402
  Transmission Date: 20120825
  Serious: Yes (Hospitalization, Other)
  Sender: FDA-Public Use
  Company Number: FR-ROCHE-1056061

PATIENT
  Age: 73 Year
  Sex: Male

DRUGS (23)
  1. MABTHERA [Suspect]
     Indication: B-CELL LYMPHOMA
     Dosage: FIRST COURSE
     Route: 065
     Dates: start: 20080215
  2. MABTHERA [Suspect]
     Dosage: SECOND COURSE
     Route: 065
     Dates: start: 20080314
  3. CYCLOPHOSPHAMIDE [Concomitant]
     Dosage: FOURTH COURSE
     Dates: start: 20080509
  4. VALACYCLOVIR HYDROCHLORIDE [Concomitant]
     Indication: INFECTION PROPHYLAXIS
     Dosage: FIRST COURSE
     Dates: start: 20081124
  5. VALACYCLOVIR HYDROCHLORIDE [Concomitant]
     Dosage: FOURTH COURSE
     Dates: start: 20090825
  6. MABTHERA [Suspect]
     Dosage: FOURTH COURSE
     Route: 065
     Dates: start: 20080509
  7. MABTHERA [Suspect]
     Dosage: FIFTH COURSE
     Route: 065
     Dates: start: 20080619, end: 20091202
  8. CYCLOPHOSPHAMIDE [Concomitant]
     Indication: B-CELL LYMPHOMA
     Dosage: FIRST COURSE
     Dates: start: 20080215
  9. FLUDARA [Concomitant]
     Dosage: THIRD COURSE
     Route: 065
     Dates: start: 20080411
  10. FLUDARA [Concomitant]
     Dosage: FIFTH COURSE
     Route: 065
     Dates: start: 20080619
  11. BACTRIM [Concomitant]
     Indication: INFECTION PROPHYLAXIS
     Dosage: FIRST COURSE
     Dates: start: 20081124
  12. BACTRIM [Concomitant]
     Dosage: FOURTH COURSE
     Dates: start: 20090825
  13. VALACYCLOVIR HYDROCHLORIDE [Concomitant]
     Dosage: THIRD COURSE
     Dates: start: 20090525
  14. CYCLOPHOSPHAMIDE [Concomitant]
     Dosage: SECOND COURSE
     Dates: start: 20080314
  15. FLUDARA [Concomitant]
     Dosage: FOURTH COURSE
     Route: 065
     Dates: start: 20080509
  16. FLUDARA [Concomitant]
     Dosage: SECOND COURSE
     Route: 065
     Dates: start: 20080314
  17. VALACYCLOVIR HYDROCHLORIDE [Concomitant]
     Dosage: SECOND COURSE
     Dates: start: 20090224
  18. CYCLOPHOSPHAMIDE [Concomitant]
     Dosage: THIRD COURSE
     Dates: start: 20080411
  19. CYCLOPHOSPHAMIDE [Concomitant]
     Dosage: FIFTH COURSE
     Dates: start: 20080619
  20. BACTRIM [Concomitant]
     Dosage: THIRD COURSE
     Dates: start: 20090525
  21. MABTHERA [Suspect]
     Dosage: THIRD COURSE
     Route: 065
     Dates: start: 20080411
  22. FLUDARA [Concomitant]
     Indication: B-CELL LYMPHOMA
     Dosage: FIRST COURSE
     Dates: start: 20080215
  23. BACTRIM [Concomitant]
     Dosage: SECOND COURSE
     Dates: start: 20090224

REACTIONS (2)
  - LUNG INFECTION [None]
  - MYELODYSPLASTIC SYNDROME [None]
